FAERS Safety Report 5203008-1 (Version None)
Quarter: 2006Q4

REPORT INFORMATION
  Report Type: 
  Country: None (occurrence: None)
  Receive Date: 20061016
  Receipt Date: 20051228
  Transmission Date: 20070319
  Serious: Yes (Other)
  Sender: FDA-Public Use
  Company Number: 2006000297

PATIENT
  Age: 66 Year
  Sex: Female

DRUGS (6)
  1. NEURONTIN [Suspect]
     Indication: ANXIETY
     Dosage: 1600 MG (400 MG , 4 IN 1 D), UNKNOWN
  2. SERAX [Concomitant]
  3. LEVOXYL [Concomitant]
     Indication: AFFECTIVE DISORDER
     Dosage: 1600 MG, (400 MG, 4  IN 1 D), UNKNOWN
  4. LEVOXYL [Concomitant]
     Indication: ANXIETY
     Dosage: 1600 MG, (400 MG, 4  IN 1 D), UNKNOWN
  5. SERAX [Concomitant]
  6. LEVOXYL [Concomitant]

REACTIONS (9)
  - ARTHRALGIA [None]
  - DRY EYE [None]
  - GLAUCOMA [None]
  - KERATITIS [None]
  - MYALGIA [None]
  - PRURITUS [None]
  - STRESS [None]
  - TINEA PEDIS [None]
  - WEIGHT FLUCTUATION [None]
